FAERS Safety Report 8886207 (Version 4)
Quarter: 2016Q4

REPORT INFORMATION
  Report Type: Spontaneous
  Country: JP (occurrence: JP)
  Receive Date: 20121105
  Receipt Date: 20161028
  Transmission Date: 20170207
  Serious: Yes (Death, Other)
  Sender: FDA-Public Use
  Company Number: JP-SANOFI-AVENTIS-2012SA080366

PATIENT
  Age: 70 Year
  Sex: Male
  Weight: 65.5 kg

DRUGS (4)
  1. TRAMADOL HYDROCHLORIDE/PARACETAMOL [Concomitant]
     Route: 065
  2. ROPIVACAINE [Concomitant]
     Active Substance: ROPIVACAINE
     Route: 065
  3. MYSLEE [Suspect]
     Active Substance: ZOLPIDEM TARTRATE
     Indication: INSOMNIA
     Route: 048
  4. CHLORPHENIRAMINE. [Suspect]
     Active Substance: CHLORPHENIRAMINE
     Indication: ANTIALLERGIC THERAPY
     Route: 065

REACTIONS (2)
  - Somnambulism [Not Recovered/Not Resolved]
  - Abnormal behaviour [Fatal]
